FAERS Safety Report 4490102-6 (Version None)
Quarter: 2004Q4

REPORT INFORMATION
  Report Type: 
  Country: None (occurrence: None)
  Receive Date: 20041028
  Receipt Date: 20041013
  Transmission Date: 20050328
  Serious: Yes (Other)
  Sender: FDA-Public Use
  Company Number: K200401587

PATIENT
  Age: 68 Year
  Sex: Male
  Weight: 77.1 kg

DRUGS (5)
  1. RAMIPRIL [Suspect]
     Indication: HYPERTENSION
     Dosage: SEE IMAGE
     Route: 048
     Dates: start: 20031201, end: 20041004
  2. RAMIPRIL [Suspect]
     Indication: HYPERTENSION
     Dosage: SEE IMAGE
     Route: 048
     Dates: start: 20041005
  3. NASACORT [Concomitant]
  4. VERY GREEN FORMULA [Concomitant]
  5. HYDROCHLOROTHIAZIDE [Concomitant]

REACTIONS (5)
  - ABDOMINAL DISCOMFORT [None]
  - ABDOMINAL TENDERNESS [None]
  - MEMORY IMPAIRMENT [None]
  - MENINGEAL DISORDER [None]
  - TINNITUS [None]
